FAERS Safety Report 5012402-3 (Version None)
Quarter: 2006Q2

REPORT INFORMATION
  Report Type: 
  Country: None (occurrence: None)
  Receive Date: 20060526
  Receipt Date: 20060519
  Transmission Date: 20061013
  Serious: Yes (Other)
  Sender: FDA-Public Use
  Company Number: US-ABBOTT-06P-163-0334110-00

PATIENT
  Age: 30 Year
  Sex: Female

DRUGS (5)
  1. KALETRA [Suspect]
     Indication: HIV INFECTION
     Dosage: 798 MG/198 MG DAILY
     Route: 048
     Dates: start: 20060412
  2. NORVIR [Suspect]
     Indication: HIV INFECTION
     Route: 048
     Dates: start: 20040701, end: 20060201
  3. FOSAMPRENAVIR CALCIUM [Suspect]
     Indication: HIV INFECTION
     Route: 048
     Dates: start: 20040701, end: 20060201
  4. TENOFOVIR DISOPROXIL FULMARATE/EMTRICITABINE [Suspect]
     Indication: HIV INFECTION
     Dosage: 200 MG/300 MG DAILY
     Route: 048
     Dates: start: 20040701, end: 20060201
  5. LAMIVUDINE AND ZIDOVUDINE [Suspect]
     Indication: HIV INFECTION
     Dosage: 600 MG/ 300 MG DAILY
     Dates: start: 20060412

REACTIONS (1)
  - ABORTION SPONTANEOUS [None]
